FAERS Safety Report 6189130-4 (Version None)
Quarter: 2009Q2

REPORT INFORMATION
  Report Type: 
  Country: None (occurrence: None)
  Receive Date: 20090513
  Receipt Date: 20090211
  Transmission Date: 20091009
  Serious: No
  Sender: FDA-Public Use
  Company Number: A0768205A

PATIENT
  Age: 62 Year
  Sex: Female

DRUGS (4)
  1. TREXIMET [Suspect]
     Indication: MIGRAINE
     Route: 048
     Dates: start: 20090202
  2. CRESTOR [Concomitant]
  3. LASIX [Concomitant]
  4. VITAMIN [Concomitant]

REACTIONS (2)
  - DIZZINESS [None]
  - EUPHORIC MOOD [None]
